FAERS Safety Report 4546375-4 (Version None)
Quarter: 2005Q1

REPORT INFORMATION
  Report Type: 
  Country: None (occurrence: None)
  Receive Date: 20050103
  Receipt Date: 20041220
  Transmission Date: 20050727
  Serious: Yes (Other)
  Sender: FDA-Public Use
  Company Number: 2004060376

PATIENT
  Age: 85 Year
  Sex: Male

DRUGS (7)
  1. NORVASC [Suspect]
     Indication: HYPERTENSION
     Dosage: 2.5 MG ( 1 IN 1 D), ORAL
     Route: 048
     Dates: start: 20040622, end: 20040830
  2. FUROSEMIDE [Concomitant]
  3. BETHAHISTINE HYDROCHLORIDE        (BETAHISTINE HYDROCHLORIDE0 [Concomitant]
  4. BROTIZOLAM    (BROTIZOLAM) [Concomitant]
  5. IFENPRODIL TARTRATE   (IFENPRODIL TARTRATE) [Concomitant]
  6. CIMETADINE          (CIMETIDINE) [Concomitant]
  7. TIZANIDINE [Concomitant]

REACTIONS (5)
  - BLOOD PRESSURE SYSTOLIC INCREASED [None]
  - DRUG EFFECT DECREASED [None]
  - NEPHROSCLEROSIS [None]
  - OEDEMA PERIPHERAL [None]
  - RENAL FAILURE CHRONIC [None]
